FAERS Safety Report 9967282 (Version 2)
Quarter: 2014Q1

REPORT INFORMATION
  Report Type: Report from Study
  Country: US (occurrence: US)
  Receive Date: 20140305
  Receipt Date: 20140305
  Transmission Date: 20141002
  Serious: No
  Sender: FDA-Public Use
  Company Number: US-ABBVIE-13P-163-1100241-00

PATIENT
  Age: 39 Year
  Sex: Male

DRUGS (6)
  1. HUMIRA [Suspect]
     Indication: PSORIASIS
     Dates: start: 201008
  2. HUMIRA [Suspect]
     Indication: PSORIATIC ARTHROPATHY
  3. HUMIRA [Suspect]
     Indication: PSORIASIS
  4. HUMIRA [Suspect]
     Indication: PSORIASIS
  5. HUMIRA [Suspect]
     Dates: start: 20130621
  6. TRIAMCINOLONE [Concomitant]
     Indication: PSORIASIS

REACTIONS (8)
  - Injection site bruising [Not Recovered/Not Resolved]
  - Psoriasis [Not Recovered/Not Resolved]
  - Psoriatic arthropathy [Not Recovered/Not Resolved]
  - Joint stiffness [Not Recovered/Not Resolved]
  - Arthralgia [Not Recovered/Not Resolved]
  - Overweight [Not Recovered/Not Resolved]
  - Injection site pain [Recovered/Resolved]
  - Incorrect dose administered [Recovered/Resolved]
